FAERS Safety Report 6908558-5 (Version None)
Quarter: 2010Q3

REPORT INFORMATION
  Report Type: 
  Country: None (occurrence: None)
  Receive Date: 20100805
  Receipt Date: 20100803
  Transmission Date: 20110219
  Serious: Yes (Other)
  Sender: FDA-Public Use
  Company Number: DE-PFIZER INC-2010079279

PATIENT
  Age: 73 Year
  Sex: Female

DRUGS (1)
  1. TOVIAZ [Suspect]
     Indication: URGE INCONTINENCE
     Dosage: 4 MG, 1X/DAY
     Route: 048
     Dates: start: 20090909, end: 20090924

REACTIONS (2)
  - HYDRONEPHROSIS [None]
  - URINARY RETENTION [None]
